FAERS Safety Report 20126534 (Version 1)
Quarter: 2021Q4

REPORT INFORMATION
  Report Type: Spontaneous
  Country: CH (occurrence: CH)
  Receive Date: 20211129
  Receipt Date: 20211129
  Transmission Date: 20220303
  Serious: Yes (Death)
  Sender: FDA-Public Use
  Company Number: CH-CELGENE-CHE-20211107422

PATIENT
  Age: 74 Year
  Sex: Male

DRUGS (1)
  1. INREBIC [Suspect]
     Active Substance: FEDRATINIB HYDROCHLORIDE
     Indication: Product used for unknown indication
     Dosage: 200-400MG PER DAY
     Route: 048
     Dates: start: 20210318, end: 20210730

REACTIONS (1)
  - Death [Fatal]

NARRATIVE: CASE EVENT DATE: 20210825
